FAERS Safety Report 21141210 (Version 5)
Quarter: 2022Q4

REPORT INFORMATION
  Report Type: Spontaneous
  Country: US (occurrence: US)
  Receive Date: 20220728
  Receipt Date: 20221020
  Transmission Date: 20230113
  Serious: Yes (Other)
  Sender: FDA-Public Use
  Company Number: US-PFIZER INC-2018508597

PATIENT
  Age: 46 Year
  Sex: Female
  Weight: 65.32 kg

DRUGS (5)
  1. RAPAMUNE [Suspect]
     Active Substance: SIROLIMUS
     Indication: Lymphangioleiomyomatosis
     Dosage: 1 MG, 3X/DAY
     Dates: start: 2012
  2. RAPAMUNE [Suspect]
     Active Substance: SIROLIMUS
     Indication: Hypoxia
     Dosage: 3 MG, 3X/DAY (3 MG TABLET-1 TABLET 3 TIMES DAILY)
     Route: 048
     Dates: start: 2012
  3. RAPAMUNE [Suspect]
     Active Substance: SIROLIMUS
     Indication: Atrial septal defect
     Dosage: UNK
  4. RAPAMUNE [Suspect]
     Active Substance: SIROLIMUS
     Indication: Chronic respiratory failure
     Dosage: 1 MG, ONE TABLET THREE TIMES A DAY
  5. RAPAMUNE [Suspect]
     Active Substance: SIROLIMUS
     Indication: Colitis ulcerative

REACTIONS (10)
  - Colitis ulcerative [Not Recovered/Not Resolved]
  - Candida infection [Unknown]
  - Blood pressure increased [Unknown]
  - Blood cholesterol increased [Unknown]
  - General physical health deterioration [Unknown]
  - Off label use [Unknown]
  - Off label use [Unknown]
  - Drug ineffective for unapproved indication [Unknown]
  - Product dispensing issue [Unknown]
  - Product supply issue [Unknown]

NARRATIVE: CASE EVENT DATE: 20120101
